FAERS Safety Report 5875377-0 (Version None)
Quarter: 2008Q3

REPORT INFORMATION
  Report Type: 
  Country: None (occurrence: None)
  Receive Date: 20080904
  Receipt Date: 20080821
  Transmission Date: 20090109
  Serious: Yes (Hospitalization)
  Sender: FDA-Public Use
  Company Number: 2008001277

PATIENT
  Age: 78 Year
  Sex: Female
  Weight: 45 kg

DRUGS (9)
  1. ERLOTINIB (ERLOTINIB) (TABLET) (ERLOTINIB) [Suspect]
     Indication: LUNG ADENOCARCINOMA
     Dosage: (150 MG, QD), ORAL
     Route: 048
     Dates: start: 20080331, end: 20080425
  2. SPEAMIT (NIFEDIPINE) [Concomitant]
  3. ONEALFA [Concomitant]
  4. MUCOSTA (REBAMIPIDE) [Concomitant]
  5. GASTER D [Concomitant]
  6. DEPAS (ERIZOLAM) [Concomitant]
  7. LASIX [Concomitant]
  8. FIRSTCIN (CEFOZOPRAN HYDROCHLORIDE) [Concomitant]
  9. LOXONIN (LOXOPROFEN SODIUM) [Concomitant]

REACTIONS (2)
  - ANAEMIA [None]
  - C-REACTIVE PROTEIN INCREASED [None]
